FAERS Safety Report 14912628 (Version 1)
Quarter: 2018Q2

REPORT INFORMATION
  Report Type: Spontaneous
  Country: US (occurrence: US)
  Receive Date: 20180501
  Receipt Date: 20180501
  Transmission Date: 20180711
  Serious: Yes (Disabling)
  Sender: FDA-Public Use
  Company Number: None

PATIENT
  Age: 60 Year
  Sex: Female
  Weight: 81 kg

DRUGS (1)
  1. CYMBALTA [Suspect]
     Active Substance: DULOXETINE HYDROCHLORIDE
     Indication: FIBROMYALGIA
     Dosage: ?          QUANTITY:1 CAPSULE(S);?
     Dates: start: 20110401, end: 20180501

REACTIONS (6)
  - Hypoaesthesia [None]
  - Malaise [None]
  - Neuropathy peripheral [None]
  - Emotional disorder [None]
  - Drug ineffective [None]
  - Paraesthesia [None]

NARRATIVE: CASE EVENT DATE: 20180205
